FAERS Safety Report 7151546-7 (Version None)
Quarter: 2010Q4

REPORT INFORMATION
  Report Type: 
  Country: None (occurrence: None)
  Receive Date: 20101210
  Receipt Date: 20101203
  Transmission Date: 20110411
  Serious: Yes (Other)
  Sender: FDA-Public Use
  Company Number: US-US-EMD SERONO, INC.-7030767

PATIENT
  Sex: Female

DRUGS (2)
  1. REBIF [Suspect]
     Indication: PRODUCT USED FOR UNKNOWN INDICATION
     Route: 058
     Dates: start: 20100315, end: 20101122
  2. REBIF [Suspect]
     Route: 058
     Dates: start: 20101129

REACTIONS (3)
  - BENIGN BREAST NEOPLASM [None]
  - HYPOAESTHESIA [None]
  - PALPITATIONS [None]
